FAERS Safety Report 7854915-2 (Version None)
Quarter: 2011Q4

REPORT INFORMATION
  Report Type: 
  Country: None (occurrence: None)
  Receive Date: 20111026
  Receipt Date: 20111017
  Transmission Date: 20120403
  Serious: Yes (Hospitalization)
  Sender: FDA-Public Use
  Company Number: PHHO2011NL15954

PATIENT
  Sex: Female
  Weight: 59 kg

DRUGS (8)
  1. COTRIM [Suspect]
     Indication: PROPHYLAXIS
     Dosage: 450 MG, UNK
     Route: 048
     Dates: start: 20110629, end: 20110919
  2. VALACICLOVIR [Suspect]
     Indication: PROPHYLAXIS
     Dosage: 1000 MG, UNK
     Route: 048
     Dates: start: 20110629, end: 20110919
  3. MYCOPHENOLIC ACID [Suspect]
     Indication: GRAFT VERSUS HOST DISEASE
     Dosage: 800 MG, UNK
     Route: 048
     Dates: start: 20110628, end: 20110726
  4. SANDIMMUNE [Suspect]
     Indication: GRAFT VERSUS HOST DISEASE
     Dosage: 1160
     Route: 048
     Dates: start: 20110625, end: 20110906
  5. CLINDAMYCIN [Suspect]
     Indication: PROPHYLAXIS
     Dosage: 600 MG, UNK
     Route: 048
     Dates: start: 20110624, end: 20110919
  6. PREDNISOLONE [Suspect]
     Indication: PROPHYLAXIS
     Dosage: 2.5 MG, UNK
     Route: 048
     Dates: start: 20110625, end: 20110919
  7. PANTOPRAZOLE SODIUM [Suspect]
     Dosage: 40 MG, UNK
     Route: 048
     Dates: start: 20110629, end: 20110919
  8. AZITHROMYCIN [Suspect]
     Indication: PROPHYLAXIS
     Dosage: 250 MG, UNK
     Route: 048
     Dates: start: 20110629, end: 20110919

REACTIONS (3)
  - CONCOMITANT DISEASE PROGRESSION [None]
  - PYREXIA [None]
  - RASH PUSTULAR [None]
